FAERS Safety Report 11965696 (Version 3)
Quarter: 2016Q1

REPORT INFORMATION
  Report Type: Spontaneous
  Country: US (occurrence: US)
  Receive Date: 20160127
  Receipt Date: 20160324
  Transmission Date: 20160526
  Serious: Yes (Other)
  Sender: FDA-Public Use
  Company Number: US-009507513-1601USA008090

PATIENT
  Age: 58 Year
  Sex: Female

DRUGS (1)
  1. TEMODAR [Suspect]
     Active Substance: TEMOZOLOMIDE
     Indication: SARCOMA METASTATIC
     Dosage: 140 MG DAILY FOR 42 DAYS
     Route: 048
     Dates: start: 201511

REACTIONS (3)
  - Off label use [Unknown]
  - Adverse event [Unknown]
  - Metastases to lung [Unknown]

NARRATIVE: CASE EVENT DATE: 201511
